FAERS Safety Report 4343879-4 (Version None)
Quarter: 2004Q2

REPORT INFORMATION
  Report Type: 
  Country: None (occurrence: None)
  Receive Date: 20040421
  Receipt Date: 20040421
  Transmission Date: 20050107
  Serious: Yes (Hospitalization)
  Sender: FDA-Public Use
  Company Number: None

PATIENT
  Age: 59 Year
  Sex: Male
  Weight: 81.2 kg

DRUGS (6)
  1. CISPLATIN [Suspect]
     Indication: PROSTATE CANCER
  2. TAXOTERE [Suspect]
  3. FLUOROURACIL [Suspect]
     Dates: start: 20041030, end: 20041103
  4. ACIPHEX [Concomitant]
  5. CELEBREX [Concomitant]
  6. KYTRIL [Concomitant]

REACTIONS (5)
  - BODY TEMPERATURE INCREASED [None]
  - MUCOSAL INFLAMMATION [None]
  - NAUSEA [None]
  - NEUTROPENIA [None]
  - VOMITING [None]
